FAERS Safety Report 10547754 (Version 1)
Quarter: 2014Q4

REPORT INFORMATION
  Report Type: Spontaneous
  Country: US (occurrence: None)
  Receive Date: 20141027
  Receipt Date: 20141027
  Transmission Date: 20150529
  Serious: Yes (Death)
  Sender: FDA-Public Use
  Company Number: None

PATIENT
  Age: 20 Year
  Sex: Female
  Weight: 94.35 kg

DRUGS (7)
  1. DIPHENHYDRAMINE 50 MG PO QHS [Concomitant]
  2. TRAZADONE 100 MG PO QHS [Concomitant]
  3. CARBAMAZEPINE ER 200 MG PO QHS [Concomitant]
  4. IBUPROFEN 600 MG PO BID [Concomitant]
  5. CITALOPRAM 40 MG PO QAM [Concomitant]
  6. ABILIFY MAINTENA [Suspect]
     Active Substance: ARIPIPRAZOLE
     Indication: AFFECTIVE DISORDER
     Dosage: 400MG ?EVERY 4 WEEKS ?INTRAMUSCULAR
     Route: 030
  7. HYDROXYZINE PAMOATE 25MG PO TID [Concomitant]

REACTIONS (3)
  - Pulmonary embolism [None]
  - Unresponsive to stimuli [None]
  - Blood glucose increased [None]

NARRATIVE: CASE EVENT DATE: 20141018
